FAERS Safety Report 15699861 (Version 2)
Quarter: 2018Q4

REPORT INFORMATION
  Report Type: Spontaneous
  Country: US (occurrence: US)
  Receive Date: 20181207
  Receipt Date: 20181212
  Transmission Date: 20190205
  Serious: No
  Sender: FDA-Public Use
  Company Number: US-PFIZER INC-2018499624

PATIENT
  Age: 82 Year
  Sex: Female
  Weight: 64 kg

DRUGS (5)
  1. PROAIR [FLUTICASONE PROPIONATE] [Concomitant]
     Indication: HYPERSENSITIVITY
     Dosage: UNK, AS NEEDED [2 PUFFS INHALER AS NEEDED]
     Route: 055
  2. TROSPIUM [Concomitant]
     Active Substance: TROSPIUM
     Indication: INCONTINENCE
     Dosage: 60 MG, 1X/DAY[1 CAPSULE IN THE MORNING]
     Route: 048
  3. PREMARIN [Suspect]
     Active Substance: ESTROGENS, CONJUGATED
     Indication: URINARY TRACT INFECTION
     Dosage: UNK, 1X/DAY[ONCE A NIGHT BEFORE BEDTIME]
     Route: 067
     Dates: start: 20181202
  4. OTEZLA [Concomitant]
     Active Substance: APREMILAST
     Indication: PSORIASIS
     Dosage: 30 MG, 2X/DAY[1 TABLET IN THE MORNING AND 1 TABLET AT NIGHT]
     Route: 048
  5. SPIRIVA [Concomitant]
     Active Substance: TIOTROPIUM BROMIDE MONOHYDRATE
     Indication: HYPERSENSITIVITY
     Dosage: UNK , 1X/DAY [2 PUFFS ONCE A DAY]
     Route: 055

REACTIONS (3)
  - Product use in unapproved indication [Unknown]
  - Dysuria [Recovered/Resolved]
  - Vulvovaginal burning sensation [Recovered/Resolved]

NARRATIVE: CASE EVENT DATE: 20181202
